FAERS Safety Report 10073283 (Version 1)
Quarter: 2014Q2

REPORT INFORMATION
  Report Type: Report from Study
  Country: US (occurrence: US)
  Receive Date: 20140411
  Receipt Date: 20140411
  Transmission Date: 20141212
  Serious: Yes (Hospitalization)
  Sender: FDA-Public Use
  Company Number: PHEH2014US006963

PATIENT
  Age: 81 Year
  Sex: Male

DRUGS (17)
  1. EXELON PATCH [Suspect]
     Indication: DEMENTIA ALZHEIMER^S TYPE
     Dosage: 9.5 MG, QD
     Route: 062
     Dates: start: 20140225
  2. BABY ASPIRIN [Concomitant]
     Dosage: UNK UKN, UNK
  3. ATENOLOL [Concomitant]
     Dosage: 50 MG, QD
     Route: 048
  4. FISH OIL [Concomitant]
     Dosage: UNK UKN, UNK
  5. LISINOPRIL [Concomitant]
     Dosage: UNK UKN, UNK
  6. METFORMIN [Concomitant]
     Dosage: UNK UKN, UNK
  7. OMEPRAZOLE [Concomitant]
     Dosage: UNK UKN, UNK
  8. SEROQUEL [Concomitant]
     Dosage: UNK UKN, UNK
  9. NAMENDA [Concomitant]
     Dosage: UNK UKN, UNK
  10. COQ 10 [Concomitant]
     Dosage: UNK UKN, UNK
  11. GLUCOSAMINE SULPHATE [Concomitant]
     Dosage: UNK UKN, UNK
  12. VIT D3 [Concomitant]
     Dosage: UNK UKN, UNK
  13. B 12 [Concomitant]
     Dosage: UNK UKN, UNK
  14. CRESTOR [Concomitant]
     Dosage: UNK UKN, UNK
  15. CENTRUM SILVER [Concomitant]
     Dosage: UNK UKN, UNK
  16. AMBIEN [Concomitant]
     Dosage: UNK UKN, UNK
  17. STOOL SOFTENER [Concomitant]
     Dosage: UNK UKN, UNK

REACTIONS (5)
  - Gout [Recovered/Resolved]
  - Pain in extremity [Unknown]
  - Urinary tract infection [Recovered/Resolved]
  - Diarrhoea [Recovered/Resolved]
  - Somnolence [Recovered/Resolved]
